FAERS Safety Report 4297595-8 (Version None)
Quarter: 2004Q1

REPORT INFORMATION
  Report Type: 
  Country: None (occurrence: None)
  Receive Date: 20040126
  Receipt Date: 20031104
  Transmission Date: 20041129
  Serious: No
  Sender: FDA-Public Use
  Company Number: USA031151656

PATIENT
  Age: 10 Year
  Sex: Male
  Weight: 55 kg

DRUGS (5)
  1. STRATTERA [Suspect]
  2. ZYPREXA [Concomitant]
  3. CLONIDINE [Concomitant]
  4. CONCERTA [Concomitant]
  5. ZOLOFT [Concomitant]

REACTIONS (3)
  - ABNORMAL BEHAVIOUR [None]
  - DISTURBANCE IN ATTENTION [None]
  - DRUG INEFFECTIVE [None]
